FAERS Safety Report 16878785 (Version 1)
Quarter: 2019Q4

REPORT INFORMATION
  Report Type: Spontaneous
  Country: FR (occurrence: FR)
  Receive Date: 20191002
  Receipt Date: 20191002
  Transmission Date: 20200122
  Serious: Yes (Hospitalization, Other)
  Sender: FDA-Public Use
  Company Number: FR-WARNER CHILCOTT-2014-000899

PATIENT
  Sex: Female

DRUGS (25)
  1. ACTONEL [Suspect]
     Active Substance: RISEDRONATE SODIUM
     Indication: MENTAL DISORDER
  2. SERTRALINE [Suspect]
     Active Substance: SERTRALINE HYDROCHLORIDE
     Indication: MENTAL DISORDER
     Dosage: UNK
     Route: 048
     Dates: start: 20131107, end: 20140213
  3. DITROPAN [Suspect]
     Active Substance: OXYBUTYNIN CHLORIDE
     Indication: URINARY INCONTINENCE
     Dosage: 5 MG DAILY
     Route: 048
     Dates: end: 20140213
  4. DITROPAN [Suspect]
     Active Substance: OXYBUTYNIN CHLORIDE
     Indication: CHRONIC OBSTRUCTIVE PULMONARY DISEASE
  5. PANTOPRAZOLE [Suspect]
     Active Substance: PANTOPRAZOLE
     Indication: PROPHYLAXIS AGAINST GASTROINTESTINAL ULCER
     Dosage: 1 DF, BID
     Route: 048
     Dates: end: 20140213
  6. SERETIDE [Suspect]
     Active Substance: FLUTICASONE PROPIONATE\SALMETEROL XINAFOATE
     Indication: MENTAL DISORDER
  7. METOJECT [Suspect]
     Active Substance: METHOTREXATE SODIUM
     Indication: RHEUMATOID ARTHRITIS
     Dosage: 1 DF, 1/WEEK
     Route: 030
     Dates: start: 20131215, end: 20140213
  8. METOJECT [Suspect]
     Active Substance: METHOTREXATE SODIUM
     Indication: OSTEOPOROSIS
     Dosage: 1 DF, 1/WEEK
     Route: 030
     Dates: end: 201310
  9. RISPERDALORO [Suspect]
     Active Substance: RISPERIDONE
     Indication: RHEUMATOID ARTHRITIS
  10. COVERAM [Suspect]
     Active Substance: AMLODIPINE\PERINDOPRIL
     Indication: URINARY INCONTINENCE
  11. EFFERALGAN [Suspect]
     Active Substance: ACETAMINOPHEN
     Indication: PAIN
     Dosage: 1 MG, TID
     Route: 048
     Dates: end: 20140213
  12. ZINNAT                             /00454603/ [Suspect]
     Active Substance: CEFUROXIME AXETIL
     Indication: PAIN
  13. RISPERDALORO [Suspect]
     Active Substance: RISPERIDONE
     Indication: MENTAL DISORDER
     Dosage: 1 MG DAILY
     Route: 048
     Dates: start: 20131003, end: 20140213
  14. IXPRIM [Suspect]
     Active Substance: ACETAMINOPHEN\TRAMADOL HYDROCHLORIDE
     Indication: PAIN
     Dosage: 1 DF, BID
     Route: 048
     Dates: end: 20140213
  15. SULFARLEM [Suspect]
     Active Substance: ANETHOLTRITHION
     Indication: CHRONIC OBSTRUCTIVE PULMONARY DISEASE
     Dosage: UNK UNK, TID
     Route: 048
     Dates: end: 20140213
  16. DIFFU K [Suspect]
     Active Substance: POTASSIUM CHLORIDE
     Indication: HYPOKALAEMIA
     Dosage: UNK UNK, QD
     Route: 048
  17. ZINNAT                             /00454603/ [Suspect]
     Active Substance: CEFUROXIME AXETIL
     Indication: PNEUMONIA
     Dosage: UNK
     Route: 048
     Dates: start: 20140210, end: 20140212
  18. SULFARLEM [Suspect]
     Active Substance: ANETHOLTRITHION
     Indication: PNEUMONIA
  19. SPECIAFOLDINE [Concomitant]
     Active Substance: FOLIC ACID
     Indication: ANAEMIA
     Dosage: 2 DF, QD
     Route: 048
  20. ACTONEL [Suspect]
     Active Substance: RISEDRONATE SODIUM
     Indication: OSTEOPOROSIS
     Dosage: 35 MG, ONCE DAILY
     Route: 048
     Dates: end: 20140213
  21. SERTRALINE [Suspect]
     Active Substance: SERTRALINE HYDROCHLORIDE
     Indication: CHRONIC OBSTRUCTIVE PULMONARY DISEASE
     Dosage: UNK
     Route: 048
     Dates: start: 201308, end: 201310
  22. PANTOPRAZOLE [Suspect]
     Active Substance: PANTOPRAZOLE
     Indication: HYPOKALAEMIA
  23. OLANZAPINE. [Suspect]
     Active Substance: OLANZAPINE
     Indication: HYPERTENSION
     Dosage: UNK
     Route: 048
     Dates: start: 20131107, end: 20140213
  24. COVERAM [Suspect]
     Active Substance: AMLODIPINE\PERINDOPRIL
     Indication: HYPERTENSION
     Dosage: 5 MG DAILY
     Route: 048
     Dates: end: 20140210
  25. SERETIDE [Suspect]
     Active Substance: FLUTICASONE PROPIONATE\SALMETEROL XINAFOATE
     Indication: CHRONIC OBSTRUCTIVE PULMONARY DISEASE
     Dosage: UNK UNK, BID
     Route: 055
     Dates: end: 20140213

REACTIONS (3)
  - Hepatitis [Recovering/Resolving]
  - Gamma-glutamyltransferase increased [Recovered/Resolved]
  - Transaminases increased [Recovering/Resolving]

NARRATIVE: CASE EVENT DATE: 20140212
